FAERS Safety Report 5657953-3 (Version None)
Quarter: 2008Q1

REPORT INFORMATION
  Report Type: 
  Country: None (occurrence: None)
  Receive Date: 20080305
  Receipt Date: 20080220
  Transmission Date: 20080703
  Serious: No
  Sender: FDA-Public Use
  Company Number: 2008-171680-NL

PATIENT
  Age: 23 Year
  Sex: Female

DRUGS (1)
  1. ETONOGESTREL (BATCH #: 680713/674661) [Suspect]
     Indication: CONTRACEPTION
     Dosage: DF

REACTIONS (1)
  - PSYCHOTIC DISORDER [None]
